FAERS Safety Report 5507158-1 (Version None)
Quarter: 2007Q4

REPORT INFORMATION
  Report Type: 
  Country: None (occurrence: None)
  Receive Date: 20071102
  Receipt Date: 20071024
  Transmission Date: 20080405
  Serious: Yes (Hospitalization, Other)
  Sender: FDA-Public Use
  Company Number: 239226K07USA

PATIENT
  Age: 54 Year
  Sex: Female
  Weight: 56.6996 kg

DRUGS (10)
  1. REBIF [Suspect]
     Indication: MULTIPLE SCLEROSIS
     Dosage: 44 MCG, 3 IN 1 WEEKS, SUBCUTANEOUS
     Route: 058
     Dates: start: 20030701
  2. STEROIDS (CORTICOSTEROID NOS) [Suspect]
  3. ARICEPT [Concomitant]
  4. LEXAPRO [Concomitant]
  5. RITALIN LA [Concomitant]
  6. KLONOPIN [Concomitant]
  7. THYROID MEDICATION (THYROID THERAPY) [Concomitant]
  8. MORPHINE (MORPHINE /00036301/) [Concomitant]
  9. ANTI-INFLAMMATORY (ANTIINFLAMMATORY/ANTIRHEUMATIC PRODUCTS) [Concomitant]
  10. PERCOCET [Concomitant]

REACTIONS (7)
  - BLOOD PRESSURE INCREASED [None]
  - DEHYDRATION [None]
  - HALLUCINATION [None]
  - HAND FRACTURE [None]
  - LETHARGY [None]
  - MULTIPLE SCLEROSIS [None]
  - NECK PAIN [None]
